FAERS Safety Report 23079639 (Version 1)
Quarter: 2023Q4

REPORT INFORMATION
  Report Type: Other
  Country: None (occurrence: IN)
  Receive Date: 20231018
  Receipt Date: 20231018
  Transmission Date: 20240109
  Serious: Yes (Hospitalization, Disabling)
  Sender: FDA-Public Use
  Company Number: IN-B.Braun Medical Inc.-2147226

PATIENT
  Age: 48 Year
  Sex: Male

DRUGS (2)
  1. BUPIVACAINE HYDROCHLORIDE WITH DEXTROSE [Suspect]
     Active Substance: BUPIVACAINE HYDROCHLORIDE
     Indication: Epidural anaesthesia
  2. FENTANYL [Suspect]
     Active Substance: FENTANYL

REACTIONS (3)
  - Off label use [None]
  - Venous pressure increased [None]
  - Spinal cord haemorrhage [None]
